FAERS Safety Report 4503769-0 (Version None)
Quarter: 2004Q4

REPORT INFORMATION
  Report Type: 
  Country: None (occurrence: None)
  Receive Date: 20041115
  Receipt Date: 20041102
  Transmission Date: 20050328
  Serious: Yes (Hospitalization)
  Sender: FDA-Public Use
  Company Number: 2004086524

PATIENT
  Age: 50 Year
  Sex: Female

DRUGS (3)
  1. ATARAX [Suspect]
     Indication: ILL-DEFINED DISORDER
     Dosage: 100 MCG, ORAL
     Route: 048
     Dates: start: 20040921, end: 20040928
  2. CLORAZEPATE DIPOTASSIUM [Concomitant]
  3. FLUOXETINE HYDROCHLORIDE [Concomitant]

REACTIONS (3)
  - IRON DEFICIENCY ANAEMIA [None]
  - MALAISE [None]
  - URINARY RETENTION [None]
